FAERS Safety Report 19185054 (Version 1)
Quarter: 2021Q2

REPORT INFORMATION
  Report Type: Spontaneous
  Country: US (occurrence: US)
  Receive Date: 20210427
  Receipt Date: 20210427
  Transmission Date: 20210717
  Serious: Yes (Other)
  Sender: FDA-Public Use
  Company Number: US-PFIZER INC-2017081558

PATIENT
  Age: 48 Year
  Sex: Female
  Weight: 84.82 kg

DRUGS (1)
  1. XELJANZ XR [Suspect]
     Active Substance: TOFACITINIB CITRATE
     Indication: RHEUMATOID ARTHRITIS
     Dosage: 11 MG, 1X/DAY, (11MG, TAKES ONE PER DAY WITH BREAKFAST BY MOUTH )
     Route: 048
     Dates: end: 20201125

REACTIONS (3)
  - Pain in extremity [Unknown]
  - Postoperative wound infection [Recovered/Resolved]
  - Condition aggravated [Unknown]
